FAERS Safety Report 7233858 (Version 2)
Quarter: 2013Q3

REPORT INFORMATION
  Report Type: Spontaneous
  Country: None (occurrence: None)
  Receive Date: 20091210
  Receipt Date: 20130708
  Transmission Date: 20140515
  Serious: Yes (Hospitalization, Other)
  Sender: FDA-Public Use
  Company Number: AUR-APL-2009-01428

PATIENT
  Age: 61 Year
  Sex: Male

DRUGS (3)
  1. ALENDRONIC ACID [Suspect]
     Indication: OSTEOPOROSIS
  2. ESOMEPRAZOLE [Suspect]
     Indication: GASTROOESOPHAGEAL REFLUX DISEASE
  3. PREDNISONE [Suspect]
     Indication: RHEUMATOID ARTHRITIS
     Route: 048

REACTIONS (4)
  - Femur fracture [None]
  - Stress fracture [None]
  - Impaired healing [None]
  - Pathological fracture [None]
